FAERS Safety Report 5676036-X (Version None)
Quarter: 2008Q1

REPORT INFORMATION
  Report Type: 
  Country: None (occurrence: None)
  Receive Date: 20080321
  Receipt Date: 20080313
  Transmission Date: 20080703
  Serious: Yes (Other)
  Sender: FDA-Public Use
  Company Number: IT-JNJFOC-20080303377

PATIENT

DRUGS (3)
  1. CAELYX [Suspect]
     Indication: DRUG USE FOR UNKNOWN INDICATION
     Dosage: 30-50 MG/M2 EVERY 21-28 DAYS
     Route: 042
  2. DEXAMETHASONE TAB [Concomitant]
     Dosage: 12 HOURS BEFORE DOXORUBICIN HYDROCHLORIDE INFUSION
     Route: 065
  3. PYRIDOXINE [Concomitant]
     Route: 048

REACTIONS (2)
  - FEMALE REPRODUCTIVE NEOPLASM [None]
  - SKIN TOXICITY [None]
